FAERS Safety Report 16275832 (Version 1)
Quarter: 2019Q2

REPORT INFORMATION
  Report Type: Spontaneous
  Country: US (occurrence: US)
  Receive Date: 20190504
  Receipt Date: 20190504
  Transmission Date: 20190711
  Serious: Yes (Disabling)
  Sender: FDA-Public Use
  Company Number: None

PATIENT
  Age: 38 Year
  Sex: Male
  Weight: 70.2 kg

DRUGS (7)
  1. NORTRIPTYLINE [Concomitant]
     Active Substance: NORTRIPTYLINE
  2. ARIPIPRAZOLE. [Suspect]
     Active Substance: ARIPIPRAZOLE
     Indication: DEPRESSION
     Dosage: ?          QUANTITY:1 TABLET(S);?
     Route: 048
     Dates: start: 20190404, end: 20190426
  3. LORAZEPAM. [Concomitant]
     Active Substance: LORAZEPAM
  4. CYCLOBENZAPRINE. [Concomitant]
     Active Substance: CYCLOBENZAPRINE
  5. ESCITALOPRAM [Concomitant]
     Active Substance: ESCITALOPRAM OXALATE
  6. PENICILLIN [Concomitant]
     Active Substance: PENICILLIN
  7. ODANSETRON ODT [Concomitant]

REACTIONS (5)
  - Lip disorder [None]
  - Dysarthria [None]
  - Speech disorder [None]
  - Tongue disorder [None]
  - Muscle twitching [None]

NARRATIVE: CASE EVENT DATE: 20190423
